FAERS Safety Report 5385678-0 (Version None)
Quarter: 2007Q3

REPORT INFORMATION
  Report Type: 
  Country: None (occurrence: None)
  Receive Date: 20070712
  Receipt Date: 20070702
  Transmission Date: 20080115
  Serious: Yes (Other)
  Sender: FDA-Public Use
  Company Number: US-PFIZER INC-2007055013

PATIENT
  Sex: Female
  Weight: 52.727 kg

DRUGS (9)
  1. CHANTIX [Suspect]
     Indication: SMOKING CESSATION THERAPY
  2. DEPAKOTE [Concomitant]
  3. RISPERDAL [Concomitant]
  4. GABITRIL [Concomitant]
  5. NASAREL [Concomitant]
  6. CALIFIG [Concomitant]
  7. DETROL LA [Concomitant]
  8. SEROQUEL [Concomitant]
     Dosage: TEXT:AT BEDTIME
  9. CLOZAPINE [Concomitant]
     Dosage: TEXT:AT BEDTIME

REACTIONS (1)
  - VAGINAL HAEMORRHAGE [None]
